FAERS Safety Report 6369130-1 (Version None)
Quarter: 2009Q3

REPORT INFORMATION
  Report Type: 
  Country: None (occurrence: None)
  Receive Date: 20090922
  Receipt Date: 20090325
  Transmission Date: 20100115
  Serious: No
  Sender: FDA-Public Use
  Company Number: US-ALLERGAN-0904000US

PATIENT
  Age: 54 Year
  Sex: Female

DRUGS (1)
  1. AZELEX [Suspect]
     Indication: ERYTHEMA
     Dosage: UNK, QHS
     Route: 061

REACTIONS (3)
  - BURNING SENSATION [None]
  - ERYTHEMA [None]
  - RASH [None]
